FAERS Safety Report 11197916 (Version 1)
Quarter: 2015Q2

REPORT INFORMATION
  Report Type: Spontaneous
  Country: US (occurrence: US)
  Receive Date: 20150617
  Receipt Date: 20150617
  Transmission Date: 20150821
  Serious: No
  Sender: FDA-Public Use
  Company Number: US-GALDERMA-US15002683

PATIENT
  Age: 34 Year
  Sex: Female

DRUGS (3)
  1. MIRVASO [Suspect]
     Active Substance: BRIMONIDINE TARTRATE
     Indication: ACNE
  2. MIRVASO [Suspect]
     Active Substance: BRIMONIDINE TARTRATE
     Indication: ROSACEA
     Dosage: 0.33%
     Route: 061
     Dates: start: 20150309
  3. MIRVASO [Suspect]
     Active Substance: BRIMONIDINE TARTRATE
     Indication: URTICARIA

REACTIONS (2)
  - Urticaria [Unknown]
  - Off label use [Unknown]

NARRATIVE: CASE EVENT DATE: 20150309
